FAERS Safety Report 9183595 (Version 1)
Quarter: 2013Q1

REPORT INFORMATION
  Report Type: Spontaneous
  Country: US (occurrence: US)
  Receive Date: 20130322
  Receipt Date: 20130322
  Transmission Date: 20140127
  Serious: No
  Sender: FDA-Public Use
  Company Number: US-BRISTOL-MYERS SQUIBB COMPANY-16560963

PATIENT
  Age: 58 Year
  Sex: Male
  Weight: 54.42 kg

DRUGS (3)
  1. ERBITUX SOLN FOR INF [Suspect]
     Indication: TONGUE NEOPLASM MALIGNANT STAGE UNSPECIFIED
  2. ERBITUX SOLN FOR INF [Suspect]
     Indication: LUNG NEOPLASM MALIGNANT
  3. ERBITUX SOLN FOR INF [Suspect]
     Indication: THROAT CANCER

REACTIONS (1)
  - Rash papular [Unknown]
